FAERS Safety Report 8522456-5 (Version None)
Quarter: 2012Q3

REPORT INFORMATION
  Report Type: 
  Country: None (occurrence: None)
  Receive Date: 20120706
  Receipt Date: 20120622
  Transmission Date: 20120928
  Serious: Yes (Other)
  Sender: FDA-Public Use
  Company Number: TCI2012A03345

PATIENT
  Age: 69 Year
  Sex: Female

DRUGS (7)
  1. BAYSLOWTH (VOGLIBOSE) [Concomitant]
  2. JANUVIA [Concomitant]
  3. METACT (PIOGLOITAZONE HYDROCHLORIDE, METFORMIN HYDROCHLORIDE) [Suspect]
     Indication: TYPE 2 DIABETES MELLITUS
     Dosage: METACT LD, 1 T (1 TA B, 1 IN 1 D), PER ORAL
     Route: 048
     Dates: start: 20101227, end: 20120417
  4. METACT (PIOGLOITAZONE HYDROCHLORIDE, METFORMIN HYDROCHLORIDE) [Suspect]
     Indication: TYPE 2 DIABETES MELLITUS
     Dosage: METACT LD, 1 T (1 TA B, 1 IN 1 D), PER ORAL
     Route: 048
     Dates: start: 20120418, end: 20120418
  5. GLUFAST (MITIGLINIDE CALCIUM) [Concomitant]
  6. AMARYL [Concomitant]
  7. MEVATORTE (PRAVASTATIN SODIUM) [Concomitant]

REACTIONS (1)
  - RHABDOMYOLYSIS [None]
